FAERS Safety Report 13710987 (Version 1)
Quarter: 2017Q3

REPORT INFORMATION
  Report Type: Spontaneous
  Country: ES (occurrence: ES)
  Receive Date: 20170703
  Receipt Date: 20170703
  Transmission Date: 20171127
  Serious: Yes (Hospitalization)
  Sender: FDA-Public Use
  Company Number: ES-ALSI-201700179

PATIENT
  Sex: Female

DRUGS (1)
  1. OXIGENO MEDICINAL 200 BAR [Suspect]
     Active Substance: OXYGEN
     Indication: PRODUCT USED FOR UNKNOWN INDICATION
     Route: 055

REACTIONS (1)
  - Pyrexia [Recovered/Resolved]
